FAERS Safety Report 9137871 (Version 2)
Quarter: 2013Q1

REPORT INFORMATION
  Report Type: Spontaneous
  Country: IE (occurrence: IE)
  Receive Date: 20130304
  Receipt Date: 20130325
  Transmission Date: 20140127
  Serious: Yes (Hospitalization)
  Sender: FDA-Public Use
  Company Number: IE-ASTRAZENECA-2013SE11714

PATIENT
  Sex: 0

DRUGS (3)
  1. SYNAGIS [Suspect]
     Route: 030
     Dates: start: 20121227, end: 20121227
  2. VITAMIN D [Concomitant]
  3. FERINSOL [Concomitant]

REACTIONS (1)
  - Meningitis viral [Recovered/Resolved]
